FAERS Safety Report 9375735 (Version 1)
Quarter: 2013Q3

REPORT INFORMATION
  Report Type: Spontaneous
  Country: CL (occurrence: CL)
  Receive Date: 20130628
  Receipt Date: 20130705
  Transmission Date: 20140515
  Serious: Yes (Hospitalization)
  Sender: FDA-Public Use
  Company Number: CL-BAXTER-2013BAX023513

PATIENT
  Age: 22 Year
  Sex: Male
  Weight: 51 kg

DRUGS (5)
  1. EXTRANEAL SOLUCI?N PARA DIALISIS PERITONEAL CON ICODEXTRINA 7.5% [Suspect]
     Indication: DIALYSIS
     Route: 033
     Dates: start: 201302, end: 20130613
  2. ERYTHROPOIETIN [Concomitant]
     Indication: PRODUCT USED FOR UNKNOWN INDICATION
     Route: 065
  3. PHOSLO [Concomitant]
     Indication: PRODUCT USED FOR UNKNOWN INDICATION
     Route: 065
  4. FOLIC ACID [Concomitant]
     Indication: PRODUCT USED FOR UNKNOWN INDICATION
     Route: 065
  5. LEVOTHYROXINE [Concomitant]
     Indication: PRODUCT USED FOR UNKNOWN INDICATION
     Route: 065

REACTIONS (1)
  - Peritoneal haemorrhage [Recovering/Resolving]
